FAERS Safety Report 6690328-7 (Version None)
Quarter: 2010Q2

REPORT INFORMATION
  Report Type: 
  Country: None (occurrence: None)
  Receive Date: 20100421
  Receipt Date: 20100412
  Transmission Date: 20101027
  Serious: Yes (Hospitalization)
  Sender: FDA-Public Use
  Company Number: JP-JNJFOC-20090302102

PATIENT
  Age: 20 Year
  Sex: Female
  Weight: 52 kg

DRUGS (4)
  1. REMICADE [Suspect]
     Indication: CROHN'S DISEASE
     Dosage: TOTAL 1 INFUSION
     Route: 042
  2. PENTASA [Concomitant]
     Route: 048
  3. MIYA BM [Concomitant]
     Route: 048
  4. FERROMIA [Concomitant]
     Route: 048

REACTIONS (1)
  - TAKAYASU'S ARTERITIS [None]
